FAERS Safety Report 11112582 (Version 1)
Quarter: 2015Q2

REPORT INFORMATION
  Report Type: Spontaneous
  Country: BR (occurrence: BR)
  Receive Date: 20150514
  Receipt Date: 20150514
  Transmission Date: 20150821
  Serious: Yes (Hospitalization)
  Sender: FDA-Public Use
  Company Number: BR-PFIZER INC-2015158302

PATIENT
  Age: 74 Year
  Sex: Female
  Weight: 54 kg

DRUGS (2)
  1. XALATAN [Suspect]
     Active Substance: LATANOPROST
     Indication: CATARACT
     Dosage: UNK
     Route: 047
     Dates: start: 20141206
  2. CORTICORTEN [Concomitant]
     Indication: ARTHRITIS
     Dosage: UNK
     Dates: start: 1985

REACTIONS (2)
  - Product use issue [Recovered/Resolved]
  - Cataract [Unknown]

NARRATIVE: CASE EVENT DATE: 20141206
